FAERS Safety Report 8986734 (Version 1)
Quarter: 2012Q4

REPORT INFORMATION
  Report Type: 
  Country: GB (occurrence: GB)
  Receive Date: 20121227
  Receipt Date: 20121227
  Transmission Date: 20130627
  Serious: Yes (Life-Threatening, Other)
  Sender: FDA-Public Use
  Company Number: PHFR2012GB006619

PATIENT
  Age: 71 Year
  Sex: Female
  Weight: 70 kg

DRUGS (4)
  1. CLOZAPINE [Suspect]
     Indication: SCHIZOPHRENIA
     Dosage: 600 mg, QD
     Route: 048
  2. CLOZAPINE [Suspect]
     Dosage: 1200 mg, Patient doubled the dose only once
     Route: 048
     Dates: start: 2012, end: 2012
  3. PARACETAMOL [Concomitant]
     Dosage: UNK
  4. LAXIDO [Concomitant]
     Dosage: UNK

REACTIONS (8)
  - Hepatic failure [Recovered/Resolved]
  - Liver function test abnormal [Recovered/Resolved]
  - Aspartate aminotransferase increased [Recovered/Resolved]
  - Alanine aminotransferase increased [Recovered/Resolved]
  - Gamma-glutamyltransferase increased [Recovered/Resolved]
  - Blood alkaline phosphatase increased [Recovered/Resolved]
  - Accidental overdose [Unknown]
  - Incorrect dose administered [Recovered/Resolved]
